FAERS Safety Report 4472757-5 (Version None)
Quarter: 2004Q4

REPORT INFORMATION
  Report Type: 
  Country: None (occurrence: None)
  Receive Date: 20041012
  Receipt Date: 20041012
  Transmission Date: 20050328
  Serious: Yes (Life-Threatening)
  Sender: FDA-Public Use
  Company Number: None

PATIENT
  Sex: Female
  Weight: 36.2878 kg

DRUGS (1)
  1. CLARITIN [Suspect]
     Indication: HYPERSENSITIVITY
     Dosage: 10 MG Q ORAL
     Route: 048
     Dates: start: 20041010, end: 20041010

REACTIONS (5)
  - ACCIDENTAL OVERDOSE [None]
  - CHEST PAIN [None]
  - HEART RATE INCREASED [None]
  - MEDICATION ERROR [None]
  - TREMOR [None]
